FAERS Safety Report 11192509 (Version 2)
Quarter: 2015Q3

REPORT INFORMATION
  Report Type: Spontaneous
  Country: FR (occurrence: FR)
  Receive Date: 20150616
  Receipt Date: 20150706
  Transmission Date: 20151125
  Serious: Yes (Other)
  Sender: FDA-Public Use
  Company Number: FR-PFIZER INC-2015197427

PATIENT
  Age: 78 Year
  Sex: Male

DRUGS (2)
  1. LYRICA [Concomitant]
     Active Substance: PREGABALIN
     Dosage: 2X/DAY
  2. DUROGESIC [Suspect]
     Active Substance: FENTANYL
     Dosage: UNK

REACTIONS (3)
  - Confusional state [Recovering/Resolving]
  - Somnolence [Recovering/Resolving]
  - Respiratory depression [Recovering/Resolving]
